FAERS Safety Report 9447775 (Version 1)
Quarter: 2013Q3

REPORT INFORMATION
  Report Type: Spontaneous
  Country: FR (occurrence: None)
  Receive Date: 20130805
  Receipt Date: 20130805
  Transmission Date: 20140515
  Serious: Yes (Hospitalization)
  Sender: FDA-Public Use
  Company Number: 1818927

PATIENT
  Age: 72 Year
  Sex: Female

DRUGS (4)
  1. CARBOPLATIN [Suspect]
     Indication: OVARIAN CANCER
     Route: 042
     Dates: start: 20120716
  2. DEXCHLORPHENIRAMINE [Suspect]
     Indication: PREMEDICATION
     Route: 042
     Dates: start: 20120716
  3. RANITIDINE [Suspect]
     Indication: PREMEDICATION
     Route: 042
     Dates: start: 20120716
  4. METHYLPREDNISOLONE [Suspect]
     Indication: PREMEDICATION
     Route: 042
     Dates: start: 20120716

REACTIONS (6)
  - Feeling hot [None]
  - Paraesthesia [None]
  - Erythema [None]
  - Tachycardia [None]
  - Hypertension [None]
  - Infusion related reaction [None]
